FAERS Safety Report 7210752-3 (Version None)
Quarter: 2010Q4

REPORT INFORMATION
  Report Type: 
  Country: None (occurrence: None)
  Receive Date: 20101223
  Receipt Date: 20101213
  Transmission Date: 20110411
  Serious: Yes (Hospitalization, Other)
  Sender: FDA-Public Use
  Company Number: TCI2010A05484

PATIENT
  Age: 83 Year
  Sex: Female

DRUGS (6)
  1. LASOPRAN OD (LANSOPRAZOLE) [Suspect]
     Indication: PRODUCT USED FOR UNKNOWN INDICATION
     Dosage: PER ORAL
     Route: 048
     Dates: end: 20100113
  2. MOBIC [Concomitant]
  3. CEREGASRON (IRSOGLADINE MALEATE) [Concomitant]
  4. DIOVAN [Concomitant]
  5. AMLODIPINE [Concomitant]
  6. LERITE (ENALAPRIL MALEATE) [Concomitant]

REACTIONS (3)
  - COLITIS COLLAGENOUS [None]
  - COLON CANCER [None]
  - LARGE INTESTINAL ULCER [None]
